FAERS Safety Report 4514546-9 (Version None)
Quarter: 2004Q4

REPORT INFORMATION
  Report Type: 
  Country: None (occurrence: None)
  Receive Date: 20041126
  Receipt Date: 20041118
  Transmission Date: 20050328
  Serious: Yes (Death, Hospitalization)
  Sender: FDA-Public Use
  Company Number: STA-AE-04-MTX-582

PATIENT
  Age: 66 Year
  Sex: Male

DRUGS (3)
  1. RHEUMATREX [Suspect]
     Indication: RHEUMATOID ARTHRITIS
     Dosage: 8 MG1X PER 1 WK, ORAL
     Route: 048
     Dates: start: 20040522, end: 20040905
  2. PREDNISOLONE [Concomitant]
  3. MOBIC [Concomitant]

REACTIONS (3)
  - BLOOD BETA-D-GLUCAN INCREASED [None]
  - INTERSTITIAL LUNG DISEASE [None]
  - MULTI-ORGAN FAILURE [None]
